FAERS Safety Report 6946352-X (Version None)
Quarter: 2010Q3

REPORT INFORMATION
  Report Type: 
  Country: None (occurrence: None)
  Receive Date: 20100827
  Receipt Date: 20100716
  Transmission Date: 20110219
  Serious: Yes (Death, Life-Threatening, Other)
  Sender: FDA-Public Use
  Company Number: US-BAXTER-2009BH017016

PATIENT
  Age: 82 Year
  Sex: Female
  Weight: 35 kg

DRUGS (55)
  1. HEPARIN SODIUM INJECTION [Suspect]
     Indication: HAEMODIALYSIS
     Route: 040
     Dates: start: 20070101, end: 20071101
  2. HEPARIN SODIUM INJECTION [Suspect]
     Indication: THROMBECTOMY
     Route: 040
     Dates: start: 20070101, end: 20071101
  3. HEPARIN SODIUM INJECTION [Suspect]
     Route: 041
     Dates: start: 20070101, end: 20071101
  4. HEPARIN SODIUM INJECTION [Suspect]
     Route: 041
     Dates: start: 20070101, end: 20071101
  5. HEPARIN SODIUM INJECTION [Suspect]
     Route: 058
     Dates: start: 20071104, end: 20071107
  6. HEPARIN SODIUM INJECTION [Suspect]
     Route: 058
     Dates: start: 20071104, end: 20071107
  7. HEPARIN SODIUM INJECTION [Suspect]
     Route: 065
     Dates: start: 20071103, end: 20071103
  8. HEPARIN SODIUM INJECTION [Suspect]
     Route: 065
     Dates: start: 20071103, end: 20071103
  9. HEPARIN SODIUM INJECTION [Suspect]
     Route: 065
  10. HEPARIN SODIUM INJECTION [Suspect]
     Route: 065
  11. HEPARIN SODIUM INJECTION [Suspect]
     Route: 065
  12. HEPARIN SODIUM INJECTION [Suspect]
     Route: 065
  13. HEPARIN SODIUM INJECTION [Suspect]
     Route: 040
     Dates: start: 20070929, end: 20071117
  14. HEPARIN SODIUM INJECTION [Suspect]
     Route: 040
     Dates: start: 20070929, end: 20071117
  15. HEPARIN SODIUM INJECTION [Suspect]
     Route: 065
  16. HEPARIN SODIUM INJECTION [Suspect]
     Route: 065
  17. HEPARIN SODIUM INJECTION [Suspect]
     Route: 065
  18. HEPARIN SODIUM INJECTION [Suspect]
     Route: 065
  19. HEPARIN SODIUM INJECTION [Suspect]
     Route: 065
  20. HEPARIN SODIUM INJECTION [Suspect]
     Route: 065
  21. HEPARIN SODIUM INJECTION [Suspect]
     Route: 065
     Dates: start: 20071030, end: 20071030
  22. HEPARIN SODIUM INJECTION [Suspect]
     Route: 065
     Dates: start: 20071030, end: 20071030
  23. HEPARIN SODIUM INJECTION [Suspect]
     Route: 065
     Dates: start: 20071103, end: 20071103
  24. HEPARIN SODIUM INJECTION [Suspect]
     Route: 065
     Dates: start: 20071103, end: 20071103
  25. HEPARIN SODIUM INJECTION [Suspect]
     Route: 065
     Dates: start: 20071104, end: 20071106
  26. HEPARIN SODIUM INJECTION [Suspect]
     Route: 065
     Dates: start: 20071104, end: 20071106
  27. AMIODARONE HYDROCHLORIDE [Concomitant]
     Indication: PRODUCT USED FOR UNKNOWN INDICATION
     Route: 048
  28. BUSPIRONE HYDROCHLORIDE [Concomitant]
     Indication: PRODUCT USED FOR UNKNOWN INDICATION
     Route: 065
  29. LOCUASTI SODIUM [Concomitant]
     Indication: PRODUCT USED FOR UNKNOWN INDICATION
     Route: 065
  30. LEXAPRO [Concomitant]
     Indication: PRODUCT USED FOR UNKNOWN INDICATION
     Route: 048
  31. LISINOPRIL [Concomitant]
     Indication: PRODUCT USED FOR UNKNOWN INDICATION
     Route: 065
  32. NITRGLYCERIN TRANSDERMAL SYSTEM [Concomitant]
     Indication: PRODUCT USED FOR UNKNOWN INDICATION
     Route: 061
  33. TOPROL-XL [Concomitant]
     Indication: PRODUCT USED FOR UNKNOWN INDICATION
     Route: 065
  34. MULTI-VITAMINS [Concomitant]
     Indication: PRODUCT USED FOR UNKNOWN INDICATION
     Route: 065
  35. ASPIRIN [Concomitant]
     Indication: PRODUCT USED FOR UNKNOWN INDICATION
     Route: 048
  36. ASCORBIC ACID [Concomitant]
     Indication: PRODUCT USED FOR UNKNOWN INDICATION
     Route: 048
  37. MEGESTROL [Concomitant]
     Indication: PRODUCT USED FOR UNKNOWN INDICATION
     Route: 048
  38. PROPOXYPHENE NAPSYLATE W/ ACETAMINOPHEN [Concomitant]
     Indication: PRODUCT USED FOR UNKNOWN INDICATION
     Route: 048
  39. TRAMADOL HCL [Concomitant]
     Indication: PRODUCT USED FOR UNKNOWN INDICATION
     Route: 048
     Dates: start: 20070901, end: 20071001
  40. ANCEF [Concomitant]
     Indication: PRODUCT USED FOR UNKNOWN INDICATION
     Route: 042
  41. FLAGYL [Concomitant]
     Indication: PRODUCT USED FOR UNKNOWN INDICATION
     Route: 048
     Dates: start: 20071101, end: 20071103
  42. ATROVENT [Concomitant]
     Indication: PRODUCT USED FOR UNKNOWN INDICATION
     Route: 065
     Dates: start: 20070901
  43. DIGOXIN [Concomitant]
     Indication: PRODUCT USED FOR UNKNOWN INDICATION
     Route: 065
  44. EMLA [Concomitant]
     Indication: ARTERIOVENOUS GRAFT
     Route: 061
  45. MAGIC MOUTHWASH [Concomitant]
     Indication: PRODUCT USED FOR UNKNOWN INDICATION
     Route: 065
     Dates: start: 20070901
  46. MORPHINE SULFATE [Concomitant]
     Indication: PRODUCT USED FOR UNKNOWN INDICATION
     Route: 030
     Dates: start: 20070801, end: 20071001
  47. NEUTRA-PHOS [Concomitant]
     Indication: PRODUCT USED FOR UNKNOWN INDICATION
     Route: 065
     Dates: start: 20070801
  48. AMLODIPINE BESYLATE [Concomitant]
     Indication: PRODUCT USED FOR UNKNOWN INDICATION
     Route: 065
     Dates: start: 20070801
  49. NOVOLOG [Concomitant]
     Indication: PRODUCT USED FOR UNKNOWN INDICATION
     Route: 065
     Dates: start: 20070801
  50. RENAGEL [Concomitant]
     Indication: PRODUCT USED FOR UNKNOWN INDICATION
     Route: 065
  51. TYLENOL-500 [Concomitant]
     Indication: PRODUCT USED FOR UNKNOWN INDICATION
     Route: 065
  52. VICODIN [Concomitant]
     Indication: PAIN
     Route: 065
  53. XOPENEX [Concomitant]
     Indication: PRODUCT USED FOR UNKNOWN INDICATION
     Route: 055
  54. ZITHROMAX [Concomitant]
     Indication: PRODUCT USED FOR UNKNOWN INDICATION
     Route: 065
     Dates: start: 20070901
  55. LEVAQUIN [Concomitant]
     Indication: PRODUCT USED FOR UNKNOWN INDICATION
     Route: 065
     Dates: start: 20070901

REACTIONS (14)
  - ARTERIOSCLEROSIS [None]
  - BLOOD PRESSURE DECREASED [None]
  - CARDIO-RESPIRATORY ARREST [None]
  - COAGULOPATHY [None]
  - DEMENTIA [None]
  - DIARRHOEA [None]
  - DYSPNOEA [None]
  - FATIGUE [None]
  - HAEMORRHAGE [None]
  - MENTAL STATUS CHANGES [None]
  - NAUSEA [None]
  - RESPIRATORY DISTRESS [None]
  - UNRESPONSIVE TO STIMULI [None]
  - VOMITING [None]
